FAERS Safety Report 23456899 (Version 2)
Quarter: 2024Q1

REPORT INFORMATION
  Report Type: Spontaneous
  Country: US (occurrence: None)
  Receive Date: 20240130
  Receipt Date: 20240212
  Transmission Date: 20240410
  Serious: Yes (Death, Hospitalization)
  Sender: FDA-Public Use
  Company Number: US-ROCHE-3495695

PATIENT
  Sex: Male

DRUGS (2)
  1. OCREVUS [Suspect]
     Active Substance: OCRELIZUMAB
     Indication: Product used for unknown indication
     Dosage: LAST DOSE RECEIVED ON 19/OCT/2030
     Route: 065
     Dates: start: 20180105
  2. TAMIFLU [Suspect]
     Active Substance: OSELTAMIVIR PHOSPHATE
     Indication: Product used for unknown indication
     Route: 065

REACTIONS (7)
  - Sepsis [Unknown]
  - Pneumonia [Unknown]
  - Influenza [Unknown]
  - B-lymphocyte count decreased [Unknown]
  - Therapy non-responder [Unknown]
  - Respiratory failure [Fatal]
  - COVID-19 [Fatal]
